FAERS Safety Report 8221492-6 (Version None)
Quarter: 2012Q1

REPORT INFORMATION
  Report Type: 
  Country: None (occurrence: None)
  Receive Date: 20120307
  Receipt Date: 20110527
  Transmission Date: 20120608
  Serious: No
  Sender: FDA-Public Use
  Company Number: PHHY2011US40424

PATIENT
  Age: 18 Year
  Sex: Female

DRUGS (7)
  1. AFINITOR [Suspect]
     Indication: ASTROCYTOMA
     Dosage: 05 MG DAILY, ORAL
     Route: 048
     Dates: start: 20110330
  2. LAMICTAL [Concomitant]
  3. ASCORBIC ACID [Concomitant]
  4. INSULIN PUMP (INSULIN) [Concomitant]
  5. VITAMIN D [Concomitant]
  6. PROZAC [Concomitant]
  7. DEPAKOTE [Concomitant]

REACTIONS (1)
  - ALOPECIA [None]
